FAERS Safety Report 8923955 (Version 1)
Quarter: 2012Q4

REPORT INFORMATION
  Report Type: Spontaneous
  Country: US (occurrence: None)
  Receive Date: 20121121
  Receipt Date: 20121121
  Transmission Date: 20130627
  Serious: No
  Sender: FDA-Public Use
  Company Number: None

PATIENT
  Age: 58 Year
  Sex: Male

DRUGS (1)
  1. REGORAFENIB [Suspect]
     Dates: start: 20111102, end: 20111109

REACTIONS (7)
  - Drug-induced liver injury [None]
  - Blood bilirubin increased [None]
  - Metastases to central nervous system [None]
  - Ascites [None]
  - Fatigue [None]
  - Jaundice [None]
  - Generalised oedema [None]
